FAERS Safety Report 23442161 (Version 1)
Quarter: 2024Q1

REPORT INFORMATION
  Report Type: Spontaneous
  Country: US (occurrence: US)
  Receive Date: 20240125
  Receipt Date: 20240125
  Transmission Date: 20240409
  Serious: Yes (Hospitalization, Other)
  Sender: FDA-Public Use
  Company Number: US-Accord-402600

PATIENT
  Age: 74 Year
  Sex: Male

DRUGS (1)
  1. METHOTREXATE [Suspect]
     Active Substance: METHOTREXATE
     Indication: Product used for unknown indication
     Dosage: INSTEAD OF THE PRESCRIBED 15 MG ONCE WEEKLY, TOOK 30 MG ONCE WEEKLY FOR 5 WEEKS

REACTIONS (5)
  - Epidermal necrosis [Unknown]
  - Combined immunodeficiency [Unknown]
  - Candida infection [Unknown]
  - Wrong dose [Unknown]
  - Pancytopenia [Unknown]
